FAERS Safety Report 5051834-4 (Version None)
Quarter: 2006Q3

REPORT INFORMATION
  Report Type: 
  Country: None (occurrence: None)
  Receive Date: 20060712
  Receipt Date: 20060712
  Transmission Date: 20061208
  Serious: Yes (Other)
  Sender: FDA-Public Use
  Company Number: None

PATIENT
  Age: 62 Year
  Sex: Male

DRUGS (17)
  1. ZOMETA [Suspect]
     Indication: PROSTATE CANCER METASTATIC
     Dosage: 4 MG MONTHLY INFUSION
     Dates: start: 20041104, end: 20051229
  2. LOPID [Concomitant]
  3. IMDUR [Concomitant]
  4. LIPITOR [Concomitant]
  5. LOPRESSOR [Concomitant]
  6. MICRO-K [Concomitant]
  7. LASIX [Concomitant]
  8. KLONOPIN [Concomitant]
  9. PRILOSEC [Concomitant]
  10. ZOLOFT [Concomitant]
  11. OXYCONTIN [Concomitant]
  12. ACTOPLUS MET [Concomitant]
  13. TRENTAL [Concomitant]
  14. LUPRON [Concomitant]
  15. DARBEPOETIN [Concomitant]
  16. ELAVIL [Concomitant]
  17. MORPHINE SULFATE [Concomitant]

REACTIONS (2)
  - OSTEONECROSIS [None]
  - PAIN IN JAW [None]
